FAERS Safety Report 5846771-9 (Version None)
Quarter: 2008Q3

REPORT INFORMATION
  Report Type: 
  Country: None (occurrence: None)
  Receive Date: 20080815
  Receipt Date: 20080808
  Transmission Date: 20090109
  Serious: Yes (Hospitalization)
  Sender: FDA-Public Use
  Company Number: GB-MERCK-0802GBR00082

PATIENT
  Age: 53 Year
  Sex: Female
  Weight: 75 kg

DRUGS (17)
  1. CANCIDAS [Suspect]
     Indication: FUNGAL INFECTION
     Route: 042
     Dates: start: 20061020, end: 20061026
  2. CANCIDAS [Suspect]
     Route: 051
     Dates: start: 20061019, end: 20061019
  3. ATENOLOL [Concomitant]
     Route: 048
  4. ATORVASTATIN [Concomitant]
     Route: 065
     Dates: end: 20061025
  5. CALCITRIOL [Concomitant]
     Route: 065
     Dates: end: 20061025
  6. CEFTAZIDIME [Concomitant]
     Route: 042
     Dates: start: 20061014, end: 20061024
  7. CODEINE PHOSPHATE [Concomitant]
     Route: 065
     Dates: start: 20061015, end: 20061025
  8. FILGRASTIM [Concomitant]
     Route: 048
     Dates: start: 20061014, end: 20061031
  9. FOLIC ACID [Concomitant]
     Route: 048
     Dates: end: 20061025
  10. ISOSORBIDE [Concomitant]
     Route: 065
  11. NICORANDIL [Concomitant]
     Route: 065
  12. ACETAMINOPHEN [Concomitant]
     Route: 065
  13. PYRIDOXINE [Concomitant]
     Route: 048
     Dates: end: 20061025
  14. RANITIDINE [Concomitant]
     Route: 048
     Dates: end: 20061025
  15. VANCOMYCIN [Concomitant]
     Route: 065
     Dates: start: 20061014, end: 20061024
  16. ALBUTEROL SULFATE [Concomitant]
     Route: 065
     Dates: start: 20061022, end: 20061025
  17. CHLORPHENIRAMINE MALEATE [Concomitant]
     Route: 065
     Dates: start: 20061023

REACTIONS (3)
  - OEDEMA [None]
  - RASH [None]
  - SWELLING [None]
